FAERS Safety Report 12581128 (Version 2)
Quarter: 2016Q3

REPORT INFORMATION
  Report Type: Spontaneous
  Country: KR (occurrence: KR)
  Receive Date: 20160721
  Receipt Date: 20160908
  Transmission Date: 20161109
  Serious: Yes (Other)
  Sender: FDA-Public Use
  Company Number: KR-GLAXOSMITHKLINE-KR2016GSK104108

PATIENT
  Age: 2 Decade
  Sex: Female

DRUGS (1)
  1. LAMISIL ONCE [Suspect]
     Active Substance: TERBINAFINE HYDROCHLORIDE
     Indication: SCAR
     Dosage: UNK
     Dates: start: 201607

REACTIONS (3)
  - Skin disorder [Not Recovered/Not Resolved]
  - Unintentional use for unapproved indication [Unknown]
  - Skin necrosis [Not Recovered/Not Resolved]
